FAERS Safety Report 9339509 (Version 1)
Quarter: 2013Q2

REPORT INFORMATION
  Report Type: Spontaneous
  Country: US (occurrence: US)
  Receive Date: 20130610
  Receipt Date: 20130610
  Transmission Date: 20140414
  Serious: Yes (Congenital Anomaly)
  Sender: FDA-Public Use
  Company Number: US-FRI-1000045761

PATIENT
  Age: 0 Day
  Sex: Male

DRUGS (1)
  1. CELEXA [Suspect]
     Route: 064

REACTIONS (3)
  - Talipes [Unknown]
  - Hypospadias [Unknown]
  - Congenital coronary artery malformation [Unknown]
